FAERS Safety Report 15618323 (Version 1)
Quarter: 2018Q4

REPORT INFORMATION
  Report Type: Spontaneous
  Country: US (occurrence: US)
  Receive Date: 20181114
  Receipt Date: 20181114
  Transmission Date: 20190205
  Serious: No
  Sender: FDA-Public Use
  Company Number: US-MYLANLABS-2018M1083730

PATIENT
  Sex: Male

DRUGS (5)
  1. PREDNISONE. [Suspect]
     Active Substance: PREDNISONE
     Dosage: 1 DF, UNK
     Dates: start: 201809
  2. PREDNISONE. [Suspect]
     Active Substance: PREDNISONE
     Indication: PAIN
     Dosage: 5 DF, UNK
     Dates: start: 20180917
  3. PREDNISONE. [Suspect]
     Active Substance: PREDNISONE
     Dosage: 3 DF, UNK
     Dates: start: 201809
  4. PREDNISONE. [Suspect]
     Active Substance: PREDNISONE
     Dosage: 2 DF, UNK
     Dates: start: 201809
  5. PREDNISONE. [Suspect]
     Active Substance: PREDNISONE
     Dosage: 4 DF, UNK
     Dates: start: 201809

REACTIONS (1)
  - Drug ineffective [Unknown]
